FAERS Safety Report 4933151-3 (Version None)
Quarter: 2006Q1

REPORT INFORMATION
  Report Type: 
  Country: None (occurrence: None)
  Receive Date: 20060106
  Receipt Date: 20050811
  Transmission Date: 20060701
  Serious: No
  Sender: FDA-Public Use
  Company Number: 200511631BWH

PATIENT
  Age: 53 Year
  Sex: Male
  Weight: 58.9676 kg

DRUGS (1)
  1. LEVITRA [Suspect]
     Indication: ERECTILE DYSFUNCTION
     Dosage: 25 MG, PRN, ORAL
     Route: 048
     Dates: start: 20050401

REACTIONS (2)
  - DRUG EFFECT DECREASED [None]
  - ERECTILE DYSFUNCTION [None]
